FAERS Safety Report 13656969 (Version 1)
Quarter: 2017Q2

REPORT INFORMATION
  Report Type: Spontaneous
  Country: GB (occurrence: GB)
  Receive Date: 20170615
  Receipt Date: 20170615
  Transmission Date: 20170830
  Serious: No
  Sender: FDA-Public Use
  Company Number: GB-SA-2017SA104063

PATIENT
  Sex: Female

DRUGS (1)
  1. ARAVA [Suspect]
     Active Substance: LEFLUNOMIDE
     Route: 048
     Dates: end: 201509

REACTIONS (3)
  - Drug tolerance decreased [Unknown]
  - Exposure during pregnancy [Unknown]
  - Genotype drug resistance test positive [Unknown]
